FAERS Safety Report 12609497 (Version 2)
Quarter: 2017Q2

REPORT INFORMATION
  Report Type: Report from Study
  Country: US (occurrence: US)
  Receive Date: 20160801
  Receipt Date: 20170608
  Transmission Date: 20170830
  Serious: Yes (Other)
  Sender: FDA-Public Use
  Company Number: US-ROCHE-1805587

PATIENT
  Age: 9 Year
  Sex: Male
  Weight: 27.5 kg

DRUGS (4)
  1. NUTROPIN AQ [Suspect]
     Active Substance: SOMATROPIN
     Indication: GROWTH HORMONE DEFICIENCY
     Dosage: ALT 1MG TO 1.2MG; ONGOING: YES
     Route: 058
     Dates: start: 20160727
  2. NUTROPIN AQ [Suspect]
     Active Substance: SOMATROPIN
     Indication: HYPOPITUITARISM
     Dosage: ALT 1MG TO 1.2MG; ONGOING: YES
     Route: 058
  3. GENOTROPIN [Concomitant]
     Active Substance: SOMATROPIN
     Route: 058
  4. SOLU-CORTEF [Concomitant]
     Active Substance: HYDROCORTISONE SODIUM SUCCINATE
     Route: 058

REACTIONS (8)
  - Injection site pain [Recovering/Resolving]
  - Rash [Recovering/Resolving]
  - Injection site erythema [Unknown]
  - Injection site bruising [Recovering/Resolving]
  - Localised infection [Recovering/Resolving]
  - Burning sensation [Unknown]
  - Peripheral swelling [Recovering/Resolving]
  - Pain [Unknown]

NARRATIVE: CASE EVENT DATE: 20160727
